FAERS Safety Report 4774970-6 (Version None)
Quarter: 2005Q3

REPORT INFORMATION
  Report Type: 
  Country: None (occurrence: None)
  Receive Date: 20050921
  Receipt Date: 20050907
  Transmission Date: 20060218
  Serious: Yes (Hospitalization, Other)
  Sender: FDA-Public Use
  Company Number: US-JNJFOC-20050304166

PATIENT
  Age: 52 Year
  Sex: Male
  Weight: 79.38 kg

DRUGS (26)
  1. DURAGESIC-100 [Suspect]
     Route: 062
  2. DURAGESIC-100 [Suspect]
     Route: 062
  3. DURAGESIC-100 [Suspect]
     Route: 062
  4. DURAGESIC-100 [Suspect]
     Route: 062
  5. DURAGESIC-100 [Suspect]
     Route: 062
  6. DURAGESIC-100 [Suspect]
     Route: 062
  7. DURAGESIC-100 [Suspect]
     Route: 062
  8. DURAGESIC-100 [Suspect]
     Dosage: DOSE WAS TITRATED FROM 25 UG/HR TO 400 UG/HR
     Route: 062
  9. FENTANYL [Suspect]
     Route: 062
  10. ATENOLOL [Concomitant]
     Indication: HYPERTENSION
     Route: 048
  11. XANAX [Concomitant]
     Indication: ANXIETY
     Route: 048
  12. KLONOPIN [Concomitant]
     Indication: PANIC DISORDER
     Route: 048
  13. ATENOLOL [Concomitant]
     Route: 048
  14. TRAZODONE [Concomitant]
     Indication: INSOMNIA
     Route: 048
  15. MELLARIL [Concomitant]
     Indication: ANXIETY
     Route: 048
  16. NEXIUM [Concomitant]
     Indication: ULCER
     Route: 048
  17. PANCREASE [Concomitant]
     Indication: PANCREATITIS
     Route: 048
  18. PHENERGAN [Concomitant]
     Indication: NAUSEA
     Route: 048
  19. DILAUDID [Concomitant]
     Indication: PAIN
  20. TOPROL-XL [Concomitant]
     Indication: DRUG USE FOR UNKNOWN INDICATION
  21. THIORIDAZINE [Concomitant]
     Indication: DRUG USE FOR UNKNOWN INDICATION
  22. METOCLOPRAMIDE [Concomitant]
     Indication: DRUG USE FOR UNKNOWN INDICATION
  23. PANTOPRAZOLE [Concomitant]
     Indication: DRUG USE FOR UNKNOWN INDICATION
  24. LIPASE [Concomitant]
     Indication: DRUG USE FOR UNKNOWN INDICATION
     Dosage: 5 TABLETS, 3 IN 1 DAY
  25. GEMFIBROZIL [Concomitant]
     Indication: DRUG USE FOR UNKNOWN INDICATION
  26. RANITIDINE [Concomitant]
     Indication: DRUG USE FOR UNKNOWN INDICATION

REACTIONS (28)
  - ABDOMINAL DISTENSION [None]
  - ABDOMINAL PAIN [None]
  - ANXIETY [None]
  - BLOOD PRESSURE INCREASED [None]
  - CHEST PAIN [None]
  - CHILLS [None]
  - DIARRHOEA [None]
  - DRUG TOLERANCE [None]
  - DRUG TOLERANCE INCREASED [None]
  - DRY MOUTH [None]
  - DYSPNOEA [None]
  - EATING DISORDER [None]
  - EYE IRRITATION [None]
  - FEELING ABNORMAL [None]
  - HEADACHE [None]
  - INADEQUATE ANALGESIA [None]
  - INFLAMMATION [None]
  - INSOMNIA [None]
  - NASAL DRYNESS [None]
  - ORAL INTAKE REDUCED [None]
  - PAIN [None]
  - PANCREATITIS [None]
  - PANCREATITIS CHRONIC [None]
  - PANCREATITIS RELAPSING [None]
  - PHARMACEUTICAL PRODUCT COMPLAINT [None]
  - SCHIZOPHRENIA [None]
  - THERAPEUTIC RESPONSE DECREASED [None]
  - VOMITING [None]
